FAERS Safety Report 7080543-5 (Version None)
Quarter: 2010Q4

REPORT INFORMATION
  Report Type: 
  Country: None (occurrence: None)
  Receive Date: 20101025
  Receipt Date: 20101019
  Transmission Date: 20110411
  Serious: Yes (Hospitalization, Other)
  Sender: FDA-Public Use
  Company Number: DSA_03274_2010

PATIENT
  Sex: Female

DRUGS (2)
  1. VANIQA [Suspect]
     Indication: HAIR GROWTH ABNORMAL
     Dosage: (1 DF BID, DF TOPICAL)
     Route: 061
     Dates: start: 19990101
  2. UNSPECIIFED MEDICATIONS [Concomitant]

REACTIONS (4)
  - ALOPECIA [None]
  - ENDOMETRIAL CANCER STAGE I [None]
  - HAIR GROWTH ABNORMAL [None]
  - LUNG NEOPLASM [None]
